FAERS Safety Report 5011046-7 (Version None)
Quarter: 2006Q2

REPORT INFORMATION
  Report Type: 
  Country: None (occurrence: None)
  Receive Date: 20060525
  Receipt Date: 20040602
  Transmission Date: 20061013
  Serious: No
  Sender: FDA-Public Use
  Company Number: US-BRISTOL-MYERS SQUIBB COMPANY-12603296

PATIENT
  Age: 56 Year
  Sex: Female
  Weight: 95 kg

DRUGS (7)
  1. NADOLOL [Suspect]
     Indication: MIGRAINE
     Route: 048
  2. PRAVACHOL [Concomitant]
  3. ALLEGRA [Concomitant]
  4. PROTONIX [Concomitant]
  5. OGEN [Concomitant]
  6. ALTACE [Concomitant]
  7. BEXTRA [Concomitant]

REACTIONS (1)
  - SLUGGISHNESS [None]
